FAERS Safety Report 9920849 (Version 3)
Quarter: 2015Q2

REPORT INFORMATION
  Report Type: Report from Study
  Country: CA (occurrence: CA)
  Receive Date: 20140225
  Receipt Date: 20150527
  Transmission Date: 20150821
  Serious: Yes (Other)
  Sender: FDA-Public Use
  Company Number: CA-ROCHE-1350461

PATIENT
  Age: 41 Year
  Sex: Female
  Weight: 142.9 kg

DRUGS (12)
  1. FOLIC ACID. [Concomitant]
     Active Substance: FOLIC ACID
  2. SULFASALAZINE. [Concomitant]
     Active Substance: SULFASALAZINE
  3. ACETAMINOPHEN. [Concomitant]
     Active Substance: ACETAMINOPHEN
     Indication: PREMEDICATION
     Route: 048
     Dates: start: 20130523
  4. NAPROXEN. [Concomitant]
     Active Substance: NAPROXEN
  5. RITUXAN [Suspect]
     Active Substance: RITUXIMAB
     Indication: RHEUMATOID ARTHRITIS
     Dosage: LAST DOSE ADMINISTERED ON: 20/NOV/2014.
     Route: 042
     Dates: start: 20130523
  6. PREDNISONE. [Concomitant]
     Active Substance: PREDNISONE
     Indication: PREMEDICATION
     Dosage: THE NIGHT BEFORE
     Route: 048
     Dates: start: 20130523
  7. SYNTHROID [Concomitant]
     Active Substance: LEVOTHYROXINE SODIUM
  8. ZOLOFT [Concomitant]
     Active Substance: SERTRALINE HYDROCHLORIDE
  9. LOSEC [Concomitant]
     Active Substance: OMEPRAZOLE
  10. ATACAND [Concomitant]
     Active Substance: CANDESARTAN CILEXETIL
  11. METHOTREXATE [Concomitant]
     Active Substance: METHOTREXATE
  12. DIPHENHYDRAMINE [Concomitant]
     Active Substance: DIPHENHYDRAMINE
     Indication: PREMEDICATION
     Route: 048
     Dates: start: 20130523

REACTIONS (3)
  - Dyspnoea [Unknown]
  - Pneumonia [Unknown]
  - Haemoptysis [Unknown]

NARRATIVE: CASE EVENT DATE: 20140203
